FAERS Safety Report 16880314 (Version 2)
Quarter: 2019Q4

REPORT INFORMATION
  Report Type: Spontaneous
  Country: CH (occurrence: SZ)
  Receive Date: 20191003
  Receipt Date: 20191015
  Transmission Date: 20200122
  Serious: Yes (Other)
  Sender: FDA-Public Use
  Company Number: CH-B.I. PHARMACEUTICALS,INC./RIDGEFIELD-2019-BI-104772

PATIENT
  Age: 75 Year
  Sex: Female

DRUGS (4)
  1. CATAPRESAN [Suspect]
     Active Substance: CLONIDINE
     Indication: NECK PAIN
     Route: 037
     Dates: start: 2012
  2. CATAPRESAN [Suspect]
     Active Substance: CLONIDINE
     Indication: BACK PAIN
  3. MORPHINE [Suspect]
     Active Substance: MORPHINE
     Indication: NECK PAIN
     Dosage: INFUSION
     Route: 037
     Dates: start: 2012
  4. MORPHINE [Suspect]
     Active Substance: MORPHINE
     Indication: BACK PAIN

REACTIONS (5)
  - Paresis [Recovering/Resolving]
  - Paraesthesia [Unknown]
  - General physical health deterioration [Unknown]
  - Spinal laminectomy [Unknown]
  - Catheter site granuloma [Unknown]

NARRATIVE: CASE EVENT DATE: 201804
